FAERS Safety Report 7043631-5 (Version None)
Quarter: 2010Q4

REPORT INFORMATION
  Report Type: 
  Country: None (occurrence: None)
  Receive Date: 20101013
  Receipt Date: 20101005
  Transmission Date: 20110411
  Serious: Yes (Hospitalization)
  Sender: FDA-Public Use
  Company Number: B0678650A

PATIENT
  Sex: Male
  Weight: 85 kg

DRUGS (7)
  1. PAZOPANIB [Suspect]
     Indication: MALIGNANT NEOPLASM PROGRESSION
     Dosage: 400MG PER DAY
     Route: 048
     Dates: start: 20100921
  2. DOCETAXEL [Suspect]
     Indication: MALIGNANT NEOPLASM PROGRESSION
     Dosage: 60MGM2 PER DAY
     Route: 042
     Dates: start: 20100920
  3. INSULINE [Concomitant]
     Dosage: 41U TWICE PER DAY
     Route: 058
  4. VALSARTAN [Concomitant]
     Indication: HYPERTENSION
     Dosage: 80MG PER DAY
     Route: 048
  5. METFORMIN HCL [Concomitant]
     Dosage: 1000MG PER DAY
     Route: 048
  6. NIFEDIPINE [Concomitant]
     Indication: HYPERTENSION
     Dosage: 30MG THREE TIMES PER DAY
     Route: 048
     Dates: start: 20100927
  7. LAMIVUDINE-HPB [Concomitant]
     Indication: HEPATITIS B
     Dosage: 100MG PER DAY
     Route: 048
     Dates: start: 20100928

REACTIONS (3)
  - EATING DISORDER [None]
  - ORAL CANDIDIASIS [None]
  - STOMATITIS [None]
